FAERS Safety Report 5215749-0 (Version None)
Quarter: 2007Q1

REPORT INFORMATION
  Report Type: 
  Country: None (occurrence: None)
  Receive Date: 20070116
  Receipt Date: 20061204
  Transmission Date: 20070707
  Serious: Yes (Hospitalization, Other)
  Sender: FDA-Public Use
  Company Number: 9039997-2006-00123

PATIENT
  Sex: Male

DRUGS (2)
  1. LEVULAN [Suspect]
     Indication: BARRETT'S OESOPHAGUS
     Dosage: 60 MG/KG, ONCE, ORAL
     Route: 048
  2. LEVULAN [Suspect]
     Indication: DYSPLASIA
     Dosage: 60 MG/KG, ONCE, ORAL
     Route: 048

REACTIONS (2)
  - HAEMATEMESIS [None]
  - ULCER [None]
